FAERS Safety Report 6390594-1 (Version None)
Quarter: 2009Q4

REPORT INFORMATION
  Report Type: 
  Country: None (occurrence: None)
  Receive Date: 20091005
  Receipt Date: 20091005
  Transmission Date: 20100525
  Serious: Yes (Disabling)
  Sender: FDA-Public Use
  Company Number: None

PATIENT
  Sex: Female

DRUGS (1)
  1. OTRIVIN [Suspect]
     Indication: NASAL CONGESTION
     Dosage: NASAL
     Route: 045

REACTIONS (5)
  - EPISTAXIS [None]
  - FACE INJURY [None]
  - MUCOSAL DRYNESS [None]
  - NASAL DISORDER [None]
  - PAIN [None]
